FAERS Safety Report 8833420 (Version 2)
Quarter: 2012Q4

REPORT INFORMATION
  Report Type: 
  Country: US (occurrence: US)
  Receive Date: 20121010
  Receipt Date: 20121025
  Transmission Date: 20130627
  Serious: Yes (Hospitalization, Other)
  Sender: FDA-Public Use
  Company Number: US-PFIZER INC-2012249519

PATIENT
  Age: 52 Year
  Sex: Female
  Weight: 76.64 kg

DRUGS (2)
  1. CHANTIX [Suspect]
     Indication: ATAXIA
     Dosage: 0.5 mg, 1x/day
     Route: 048
     Dates: start: 20121007, end: 20121007
  2. LOVASTATIN [Concomitant]
     Indication: BLOOD CHOLESTEROL INCREASED
     Dosage: UNK

REACTIONS (3)
  - Cardio-respiratory distress [Unknown]
  - Dizziness [Unknown]
  - Off label use [Unknown]
